FAERS Safety Report 17052248 (Version 1)
Quarter: 2019Q4

REPORT INFORMATION
  Report Type: Spontaneous
  Country: US (occurrence: US)
  Receive Date: 20191119
  Receipt Date: 20191119
  Transmission Date: 20200122
  Serious: Yes (Death)
  Sender: FDA-Public Use
  Company Number: None

PATIENT
  Age: 80 Year
  Sex: Female

DRUGS (12)
  1. CAPECITABINE. [Concomitant]
     Active Substance: CAPECITABINE
  2. LEVOFLOXACIN. [Concomitant]
     Active Substance: LEVOFLOXACIN
  3. TARCEVA [Suspect]
     Active Substance: ERLOTINIB HYDROCHLORIDE
     Indication: PANCREATIC CARCINOMA METASTATIC
     Route: 048
     Dates: start: 20190320
  4. CLINDAMYCIN GEL [Concomitant]
     Active Substance: CLINDAMYCIN PHOSPHATE
  5. ONDANSETRON [Concomitant]
     Active Substance: ONDANSETRON
  6. FLUOXETINE [Concomitant]
     Active Substance: FLUOXETINE HYDROCHLORIDE
  7. OXYCODONE [Concomitant]
     Active Substance: OXYCODONE
  8. SIMVASTATIN. [Concomitant]
     Active Substance: SIMVASTATIN
  9. MORPHINE [Concomitant]
     Active Substance: MORPHINE
  10. ASPIRIN. [Concomitant]
     Active Substance: ASPIRIN
  11. HYDROCORT CRE [Concomitant]
  12. DOXYCYCL HYC [Concomitant]

REACTIONS (1)
  - Death [None]
